FAERS Safety Report 14528055 (Version 3)
Quarter: 2018Q1

REPORT INFORMATION
  Report Type: Spontaneous
  Country: US (occurrence: US)
  Receive Date: 20180213
  Receipt Date: 20180224
  Transmission Date: 20180509
  Serious: Yes (Other)
  Sender: FDA-Public Use
  Company Number: US-JNJFOC-20180206891

PATIENT
  Age: 16 Year
  Sex: Male
  Weight: 113.4 kg

DRUGS (1)
  1. LISTERINE FLUORIDE DEFENSE ANTICAVITY MINT SHIELD [Suspect]
     Active Substance: SODIUM FLUORIDE
     Indication: PRODUCT USED FOR UNKNOWN INDICATION
     Route: 048

REACTIONS (2)
  - Incorrect route of drug administration [Unknown]
  - Haematemesis [Unknown]
